FAERS Safety Report 15539130 (Version 1)
Quarter: 2018Q4

REPORT INFORMATION
  Report Type: Spontaneous
  Country: IL (occurrence: IL)
  Receive Date: 20181022
  Receipt Date: 20181022
  Transmission Date: 20190205
  Serious: Yes (Life-Threatening, Hospitalization)
  Sender: FDA-Public Use
  Company Number: IL-LPDUSPRD-20181915

PATIENT
  Age: 66 Year
  Sex: Female

DRUGS (1)
  1. VENOFER [Suspect]
     Active Substance: IRON SUCROSE
     Dosage: UNKNOWN
     Route: 065

REACTIONS (22)
  - Pleural effusion [Unknown]
  - Staphylococcal infection [Unknown]
  - Pseudomonas infection [Unknown]
  - Respiratory acidosis [Unknown]
  - Hypoxia [Unknown]
  - Dyspnoea [Unknown]
  - Pulmonary congestion [Unknown]
  - Productive cough [Unknown]
  - Pulmonary oedema [Unknown]
  - Metabolic acidosis [Unknown]
  - Respiratory muscle weakness [Unknown]
  - Pulmonary hypertension [Unknown]
  - Respiratory distress [Unknown]
  - Post procedural haemorrhage [Unknown]
  - Purulent discharge [Unknown]
  - Oxygen saturation decreased [Unknown]
  - Blood pressure increased [Unknown]
  - Diarrhoea [Unknown]
  - Respiratory failure [Unknown]
  - Cardiac arrest [Unknown]
  - Anuria [Unknown]
  - Renal failure [Unknown]

NARRATIVE: CASE EVENT DATE: 2018
